FAERS Safety Report 9214467 (Version 1)
Quarter: 2013Q2

REPORT INFORMATION
  Report Type: Report from Study
  Country: US (occurrence: US)
  Receive Date: 20130405
  Receipt Date: 20130405
  Transmission Date: 20140414
  Serious: Yes (Other)
  Sender: FDA-Public Use
  Company Number: US-ABBOTT-12P-163-1021537-00

PATIENT
  Sex: Female

DRUGS (7)
  1. LUPRON DEPOT [Suspect]
     Indication: ENDOMETRIOSIS
     Dates: start: 201211
  2. MEGESTROL [Concomitant]
     Indication: ENDOMETRIOSIS
     Dates: start: 201210, end: 201211
  3. GABAPENTIN [Concomitant]
     Indication: FIBROMYALGIA
  4. CYMBALTA [Concomitant]
     Indication: DEPRESSION
  5. CYMBALTA [Concomitant]
     Indication: ANXIETY
  6. FLEXERIL [Concomitant]
     Indication: PAIN
     Dosage: AS NEEDED
  7. IBUPROFEN [Concomitant]
     Indication: HEADACHE

REACTIONS (7)
  - Urinary tract infection [Not Recovered/Not Resolved]
  - Urethral obstruction [Unknown]
  - Nephrolithiasis [Unknown]
  - Ureteral polyp [Unknown]
  - Medical device pain [Recovered/Resolved]
  - Urinary tract pain [Not Recovered/Not Resolved]
  - Dysuria [Unknown]
